FAERS Safety Report 15568964 (Version 1)
Quarter: 2018Q4

REPORT INFORMATION
  Report Type: Report from Study
  Country: US (occurrence: US)
  Receive Date: 20181031
  Receipt Date: 20181031
  Transmission Date: 20190205
  Serious: Yes (Other)
  Sender: FDA-Public Use
  Company Number: US-CELGENEUS-USA-20181010252

PATIENT
  Age: 60 Year
  Sex: Male

DRUGS (5)
  1. REVLIMID [Suspect]
     Active Substance: LENALIDOMIDE
     Indication: OFF LABEL USE
  2. DHAP [Concomitant]
     Indication: B-CELL LYMPHOMA
     Route: 065
     Dates: start: 201802, end: 201806
  3. MAB THERA [Concomitant]
     Route: 041
     Dates: start: 201802, end: 201806
  4. REVLIMID [Suspect]
     Active Substance: LENALIDOMIDE
     Indication: B-CELL LYMPHOMA
     Route: 048
     Dates: start: 201802, end: 201806
  5. MAB THERA [Concomitant]
     Indication: B-CELL LYMPHOMA
     Route: 041

REACTIONS (6)
  - Mucosal inflammation [Unknown]
  - Anaemia [Unknown]
  - Weight decreased [Unknown]
  - Fatigue [Unknown]
  - Febrile neutropenia [Unknown]
  - Nausea [Unknown]

NARRATIVE: CASE EVENT DATE: 2018
